FAERS Safety Report 9009971 (Version 1)
Quarter: 2013Q1

REPORT INFORMATION
  Report Type: Spontaneous
  Country: US (occurrence: US)
  Receive Date: 20130111
  Receipt Date: 20130111
  Transmission Date: 20140127
  Serious: Yes (Hospitalization, Other)
  Sender: FDA-Public Use
  Company Number: CHPA2013US000503

PATIENT
  Age: 55 Year
  Sex: Male

DRUGS (5)
  1. MAALOX ANTACID/ANTIGAS MAX LIQ [Suspect]
     Indication: OESOPHAGEAL ACHALASIA
     Dosage: 3 TSP, ONCE OR TWICE A DAY
     Route: 048
  2. MAALOX ANTACID/ANTIGAS MS LIQ COOL MINT [Suspect]
     Indication: OESOPHAGEAL ACHALASIA
     Dosage: 3 TSP, ONCE OR TWICE A DAY
     Route: 048
  3. MAALOX ANTACID/ANTIGAS MAX QDTABS ASST [Suspect]
     Indication: OESOPHAGEAL ACHALASIA
     Dosage: 1 TO 5 DF, A DAY
     Route: 048
  4. GAS-X [Concomitant]
     Indication: ERUCTATION
     Dosage: 2 TO 5 DF, A DAY
     Route: 048
  5. GAS-X [Concomitant]
     Indication: VOMITING

REACTIONS (19)
  - Coronary artery stenosis [Not Recovered/Not Resolved]
  - Cardiac disorder [Recovered/Resolved]
  - Blood pressure increased [Recovered/Resolved]
  - Oesophageal achalasia [Not Recovered/Not Resolved]
  - Foaming at mouth [Not Recovered/Not Resolved]
  - Abdominal discomfort [Not Recovered/Not Resolved]
  - Muscle spasms [Not Recovered/Not Resolved]
  - Muscle disorder [Not Recovered/Not Resolved]
  - Gastric disorder [Recovered/Resolved]
  - Tendon injury [Not Recovered/Not Resolved]
  - Cartilage injury [Not Recovered/Not Resolved]
  - Joint injury [Not Recovered/Not Resolved]
  - Muscle injury [Recovered/Resolved]
  - Rotator cuff syndrome [Not Recovered/Not Resolved]
  - Fall [Recovered/Resolved]
  - Insomnia [Recovering/Resolving]
  - Dysphagia [Recovered/Resolved]
  - Chest pain [Recovered/Resolved]
  - Off label use [Unknown]
